FAERS Safety Report 5157792-6 (Version None)
Quarter: 2006Q4

REPORT INFORMATION
  Report Type: 
  Country: None (occurrence: None)
  Receive Date: 20061121
  Receipt Date: 20061121
  Transmission Date: 20070319
  Serious: Yes (Life-Threatening, Hospitalization, Disabling, Other)
  Sender: FDA-Public Use
  Company Number: None

PATIENT
  Sex: Female
  Weight: 95.2554 kg

DRUGS (4)
  1. SPIRONOLACTONE [Suspect]
     Indication: ALOPECIA
     Dates: start: 20050711, end: 20050725
  2. SPIRONOLACTONE [Suspect]
     Indication: HYPERTENSION
     Dates: start: 20050711, end: 20050725
  3. ALDACTONE [Concomitant]
  4. . [Concomitant]

REACTIONS (8)
  - BLOOD POTASSIUM INCREASED [None]
  - DIALYSIS [None]
  - DYSSTASIA [None]
  - HEART RATE DECREASED [None]
  - HYPOTENSION [None]
  - HYPOTONIA [None]
  - INSOMNIA [None]
  - THERAPY NON-RESPONDER [None]
